FAERS Safety Report 8082817-8 (Version None)
Quarter: 2012Q1

REPORT INFORMATION
  Report Type: 
  Country: None (occurrence: None)
  Receive Date: 20120127
  Receipt Date: 20110114
  Transmission Date: 20120608
  Serious: No
  Sender: FDA-Public Use
  Company Number: US-ABBOTT-11P-163-0697577-00

PATIENT
  Age: 58 Year
  Sex: Female

DRUGS (8)
  1. POTASSIUM [Concomitant]
     Indication: BLOOD POTASSIUM DECREASED
     Route: 048
  2. VALTREX [Concomitant]
     Indication: HERPES VIRUS INFECTION
     Route: 048
  3. RESTASIS [Concomitant]
     Indication: DRY EYE
     Dosage: EYE DROPS
     Route: 047
  4. BENADRYL [Concomitant]
     Indication: INSOMNIA
     Route: 048
  5. PREDNISONE TAB [Concomitant]
     Indication: EYE INFLAMMATION
     Dosage: EYE DROPS
     Route: 047
  6. VITAMIN B COMPLEX CAP [Concomitant]
     Indication: PRODUCT USED FOR UNKNOWN INDICATION
     Route: 048
  7. NORVASC [Concomitant]
     Indication: BLOOD PRESSURE
     Route: 048
  8. HUMIRA [Suspect]
     Indication: RHEUMATOID ARTHRITIS
     Dates: start: 20100917

REACTIONS (4)
  - INJECTION SITE DISCOLOURATION [None]
  - INJECTION SITE SWELLING [None]
  - DRUG INEFFECTIVE [None]
  - INJECTION SITE PAIN [None]
